FAERS Safety Report 4267962-7 (Version None)
Quarter: 2004Q1

REPORT INFORMATION
  Report Type: 
  Country: None (occurrence: None)
  Receive Date: 20040109
  Receipt Date: 20011025
  Transmission Date: 20041129
  Serious: Yes (Hospitalization)
  Sender: FDA-Public Use
  Company Number: WAES 01104477

PATIENT
  Age: 52 Year
  Sex: Male
  Weight: 186 kg

DRUGS (8)
  1. [THERAPY UNSPECIFIED] [Concomitant]
  2. DARVOCET-N 100 [Concomitant]
  3. CELEBREX [Concomitant]
  4. FUROSEMIDE [Concomitant]
     Indication: OEDEMA PERIPHERAL
  5. OXYGEN [Concomitant]
  6. KLOR-CON [Concomitant]
  7. VIOXX [Suspect]
     Indication: LOCALISED OSTEOARTHRITIS
     Route: 048
     Dates: start: 20000131, end: 20000201
  8. VIOXX [Suspect]
     Route: 048
     Dates: start: 20000131, end: 20000201

REACTIONS (27)
  - ABDOMINAL DISTENSION [None]
  - BLOOD PRESSURE FLUCTUATION [None]
  - BLOOD PRESSURE INCREASED [None]
  - BUNDLE BRANCH BLOCK RIGHT [None]
  - CARDIOVASCULAR DISORDER [None]
  - CELLULITIS [None]
  - CHLORACNE [None]
  - COR PULMONALE [None]
  - DRUG TOXICITY [None]
  - DYSPNOEA [None]
  - GENERALISED OEDEMA [None]
  - GLAUCOMA [None]
  - HYPOAESTHESIA [None]
  - HYPOXIA [None]
  - OEDEMA [None]
  - OEDEMA PERIPHERAL [None]
  - PICKWICKIAN SYNDROME [None]
  - RENAL FAILURE [None]
  - RESPIRATORY FAILURE [None]
  - RESPIRATORY RATE INCREASED [None]
  - RESTRICTIVE PULMONARY DISEASE [None]
  - RIGHT VENTRICULAR FAILURE [None]
  - SINUS TACHYCARDIA [None]
  - SLEEP APNOEA SYNDROME [None]
  - TESTICULAR SWELLING [None]
  - VENTRICULAR HYPERTROPHY [None]
  - WEIGHT DECREASED [None]
